FAERS Safety Report 18222638 (Version 1)
Quarter: 2020Q3

REPORT INFORMATION
  Report Type: Spontaneous
  Country: BE (occurrence: BE)
  Receive Date: 20200902
  Receipt Date: 20200902
  Transmission Date: 20201103
  Serious: Yes (Hospitalization)
  Sender: FDA-Public Use
  Company Number: NVSC2020BE240559

PATIENT
  Age: 66 Year
  Sex: Female

DRUGS (4)
  1. EVEROLIMUS. [Suspect]
     Active Substance: EVEROLIMUS
     Indication: LUNG TRANSPLANT
     Dosage: UNK
     Route: 065
  2. TACROLIMUS. [Suspect]
     Active Substance: TACROLIMUS
     Indication: LUNG TRANSPLANT
     Dosage: UNK
     Route: 065
  3. TACROLIMUS. [Suspect]
     Active Substance: TACROLIMUS
     Indication: IMMUNOSUPPRESSANT DRUG THERAPY
  4. EVEROLIMUS. [Suspect]
     Active Substance: EVEROLIMUS
     Indication: IMMUNOSUPPRESSANT DRUG THERAPY

REACTIONS (4)
  - Dyspnoea [Recovered/Resolved]
  - Product use in unapproved indication [Unknown]
  - COVID-19 [Recovered/Resolved]
  - Pyrexia [Recovered/Resolved]
